FAERS Safety Report 25646446 (Version 1)
Quarter: 2025Q3

REPORT INFORMATION
  Report Type: Report from Study
  Country: US (occurrence: US)
  Receive Date: 20250805
  Receipt Date: 20250805
  Transmission Date: 20251021
  Serious: No
  Sender: MALLINCKRODT
  Company Number: US-MALLINCKRODT-MNK202501996

PATIENT
  Age: 73 Year
  Sex: Female

DRUGS (1)
  1. CORTICOTROPIN [Suspect]
     Active Substance: CORTICOTROPIN
     Indication: Punctate keratitis
     Route: 058
     Dates: start: 202411

REACTIONS (6)
  - Injection site pain [Unknown]
  - Swelling face [Unknown]
  - Swelling [Unknown]
  - Cushingoid [Unknown]
  - Drug ineffective [Unknown]
  - Product dose omission issue [Unknown]
